FAERS Safety Report 5321473-6 (Version None)
Quarter: 2007Q2

REPORT INFORMATION
  Report Type: 
  Country: None (occurrence: None)
  Receive Date: 20070510
  Receipt Date: 20070430
  Transmission Date: 20071010
  Serious: Yes (Other)
  Sender: FDA-Public Use
  Company Number: B0469963A

PATIENT
  Age: 50 Year
  Sex: Male

DRUGS (4)
  1. DEROXAT [Suspect]
     Indication: ANXIETY
     Dosage: 40MG PER DAY
     Route: 048
     Dates: start: 20070301, end: 20070428
  2. TERCIAN [Suspect]
     Dosage: 30DROP PER DAY
     Route: 048
  3. LYSANXIA [Concomitant]
     Indication: ANXIETY
     Dosage: 3TAB PER DAY
     Route: 048
  4. STILNOX [Concomitant]

REACTIONS (2)
  - AGGRESSION [None]
  - MUSCLE TIGHTNESS [None]
